FAERS Safety Report 5746663-X (Version None)
Quarter: 2008Q2

REPORT INFORMATION
  Report Type: 
  Country: None (occurrence: None)
  Receive Date: 20080522
  Receipt Date: 20080519
  Transmission Date: 20081010
  Serious: Yes (Death)
  Sender: FDA-Public Use
  Company Number: US-ASTRAZENECA-2008UW01135

PATIENT
  Age: 733 Month
  Sex: Female

DRUGS (3)
  1. SEROQUEL [Suspect]
     Indication: ANXIETY
     Dosage: 25-200 MG
     Route: 048
     Dates: start: 20010522, end: 20060601
  2. SEROQUEL [Suspect]
     Indication: DEPRESSION
     Dosage: 25-200 MG
     Route: 048
     Dates: start: 20010522, end: 20060601
  3. SEROQUEL [Suspect]
     Indication: SLEEP DISORDER
     Dosage: 25-200 MG
     Route: 048
     Dates: start: 20010522, end: 20060601

REACTIONS (3)
  - DIABETES MELLITUS [None]
  - HYPERTENSION [None]
  - MYOCARDIAL INFARCTION [None]
